FAERS Safety Report 19528489 (Version 3)
Quarter: 2021Q4

REPORT INFORMATION
  Report Type: Spontaneous
  Country: US (occurrence: US)
  Receive Date: 20210713
  Receipt Date: 20211013
  Transmission Date: 20220303
  Serious: No
  Sender: FDA-Public Use
  Company Number: US-AVEO ONCOLOGY-2021-AVEO-US003320

PATIENT

DRUGS (1)
  1. FOTIVDA [Suspect]
     Active Substance: TIVOZANIB HYDROCHLORIDE
     Indication: Renal cell carcinoma
     Dosage: 1.34 MG, DIALY FOR 21 DAYS FOLLOWING A 7 DAYS BREAK
     Dates: end: 20210701

REACTIONS (11)
  - Diarrhoea [Unknown]
  - Fatigue [Unknown]
  - Blood pressure increased [Unknown]
  - Dysphonia [Unknown]
  - Cough [Unknown]
  - Wheezing [Unknown]
  - Constipation [Unknown]
  - Oral mucosal roughening [Unknown]
  - Vomiting [Unknown]
  - Tremor [Unknown]
  - Abdominal discomfort [Unknown]
